FAERS Safety Report 6483547-6 (Version None)
Quarter: 2009Q4

REPORT INFORMATION
  Report Type: 
  Country: None (occurrence: None)
  Receive Date: 20091209
  Receipt Date: 20091201
  Transmission Date: 20100525
  Serious: Yes (Hospitalization)
  Sender: FDA-Public Use
  Company Number: JP-JNJFOC-20091006406

PATIENT
  Sex: Female
  Weight: 42 kg

DRUGS (4)
  1. DOXORUBICIN HCL [Suspect]
     Route: 042
  2. DOXORUBICIN HCL [Suspect]
     Indication: OVARIAN CANCER RECURRENT
     Route: 042
  3. DECADRON [Concomitant]
     Indication: PROPHYLAXIS
     Route: 048
  4. HACHIAZULE [Concomitant]
     Indication: PROPHYLAXIS
     Route: 002

REACTIONS (1)
  - GASTROINTESTINAL HAEMORRHAGE [None]
